FAERS Safety Report 19674408 (Version 1)
Quarter: 2021Q3

REPORT INFORMATION
  Report Type: Spontaneous
  Country: US (occurrence: US)
  Receive Date: 20210809
  Receipt Date: 20210809
  Transmission Date: 20211014
  Serious: No
  Sender: FDA-Public Use
  Company Number: None

PATIENT
  Age: 78 Year
  Sex: Female

DRUGS (1)
  1. DULOXETINE 20 MG [Suspect]
     Active Substance: DULOXETINE
     Indication: DEPRESSION
     Dosage: ?          QUANTITY:2 CAPSULE(S);?
     Route: 048

REACTIONS (5)
  - Abdominal discomfort [None]
  - Stomatitis [None]
  - Oral herpes [None]
  - Retching [None]
  - Cheilitis [None]
